FAERS Safety Report 25008176 (Version 1)
Quarter: 2025Q1

REPORT INFORMATION
  Report Type: Spontaneous
  Country: IN (occurrence: IN)
  Receive Date: 20250225
  Receipt Date: 20250225
  Transmission Date: 20250408
  Serious: Yes (Hospitalization, Other)
  Sender: HETERO
  Company Number: IN-AMAROX PHARMA-HET2025IN00775

PATIENT
  Age: 45 Year
  Sex: Male

DRUGS (2)
  1. LEVETIRACETAM [Suspect]
     Active Substance: LEVETIRACETAM
     Indication: Seizure
     Route: 065
  2. LEVETIRACETAM [Suspect]
     Active Substance: LEVETIRACETAM
     Indication: Cerebral venous sinus thrombosis

REACTIONS (1)
  - Behaviour disorder [Recovered/Resolved]
